FAERS Safety Report 6969597-1 (Version None)
Quarter: 2010Q3

REPORT INFORMATION
  Report Type: 
  Country: None (occurrence: None)
  Receive Date: 20100902
  Receipt Date: 20100824
  Transmission Date: 20110219
  Serious: Yes (Death, Life-Threatening, Other)
  Sender: FDA-Public Use
  Company Number: 2010SP046522

PATIENT
  Sex: Female

DRUGS (1)
  1. INTRON A [Suspect]
     Indication: HEPATITIS C

REACTIONS (6)
  - CACHEXIA [None]
  - DIABETES MELLITUS [None]
  - DRUG INEFFECTIVE [None]
  - LIVER TRANSPLANT [None]
  - PANCREATIC DISORDER [None]
  - RED BLOOD CELL ABNORMALITY [None]
